FAERS Safety Report 9335311 (Version 1)
Quarter: 2013Q2

REPORT INFORMATION
  Report Type: Spontaneous
  Country: CA (occurrence: CA)
  Receive Date: 20130606
  Receipt Date: 20130606
  Transmission Date: 20140414
  Serious: Yes (Death)
  Sender: FDA-Public Use
  Company Number: CA-CELGENEUS-028-21880-13060200

PATIENT
  Age: 72 Year
  Sex: Female

DRUGS (3)
  1. REVLIMID [Suspect]
     Indication: PLASMA CELL MYELOMA
     Route: 048
     Dates: start: 20110912
  2. REVLIMID [Suspect]
     Route: 048
     Dates: start: 20120314
  3. REVLIMID [Suspect]
     Route: 048
     Dates: start: 20120621

REACTIONS (1)
  - Death [Fatal]
